FAERS Safety Report 4871858-7 (Version None)
Quarter: 2006Q1

REPORT INFORMATION
  Report Type: 
  Country: None (occurrence: None)
  Receive Date: 20060104
  Receipt Date: 20050912
  Transmission Date: 20060701
  Serious: Yes (Hospitalization)
  Sender: FDA-Public Use
  Company Number: US-MERCK-0509USA01555

PATIENT
  Age: 64 Year
  Sex: Male
  Weight: 100 kg

DRUGS (16)
  1. VIOXX [Suspect]
     Indication: INTERVERTEBRAL DISC DEGENERATION
     Route: 048
     Dates: end: 20020601
  2. VIOXX [Suspect]
     Route: 048
     Dates: start: 20020601, end: 20031201
  3. VIOXX [Suspect]
     Indication: OSTEOARTHRITIS
     Route: 048
     Dates: end: 20020601
  4. VIOXX [Suspect]
     Route: 048
     Dates: start: 20020601, end: 20031201
  5. LIPITOR [Concomitant]
     Indication: HYPERCHOLESTEROLAEMIA
     Route: 065
  6. NORVASC [Concomitant]
     Indication: HYPERTENSION
     Route: 065
  7. ZANTAC [Concomitant]
     Indication: DYSPEPSIA
     Route: 065
  8. DARVOCET-N 100 [Concomitant]
     Route: 065
  9. ASPIRIN [Concomitant]
     Indication: PROPHYLAXIS
     Route: 065
  10. ASPIRIN [Concomitant]
     Route: 065
  11. EFFEXOR [Concomitant]
     Indication: DEPRESSION
     Route: 065
  12. ATACAND [Concomitant]
     Indication: GASTROINTESTINAL DISORDER
     Route: 065
  13. TRICOR [Concomitant]
     Indication: BLOOD CHOLESTEROL INCREASED
     Route: 065
  14. LAMISIL [Concomitant]
     Route: 065
  15. PLAVIX [Concomitant]
     Indication: BLOOD CHOLESTEROL INCREASED
     Route: 065
  16. LASIX [Concomitant]
     Indication: HYPERTENSION
     Route: 065

REACTIONS (14)
  - ANGINA UNSTABLE [None]
  - ARTHROPOD BITE [None]
  - CARDIAC FAILURE CONGESTIVE [None]
  - CHEST PAIN [None]
  - CORONARY ARTERY DISEASE [None]
  - CORONARY ARTERY RESTENOSIS [None]
  - DIABETIC RETINOPATHY [None]
  - GRAFT DYSFUNCTION [None]
  - HYPERTENSION [None]
  - MYOCARDIAL INFARCTION [None]
  - PROSTATE CANCER [None]
  - PULMONARY OEDEMA [None]
  - RESPIRATORY FAILURE [None]
  - SINUS TACHYCARDIA [None]
